FAERS Safety Report 12174328 (Version 2)
Quarter: 2017Q2

REPORT INFORMATION
  Report Type: Spontaneous
  Country: US (occurrence: US)
  Receive Date: 20160313
  Receipt Date: 20170412
  Transmission Date: 20170830
  Serious: No
  Sender: FDA-Public Use
  Company Number: US-ASTRAZENECA-2016SE25130

PATIENT
  Age: 79 Year
  Sex: Female
  Weight: 58.1 kg

DRUGS (18)
  1. PRILOSEC OTC [Suspect]
     Active Substance: OMEPRAZOLE MAGNESIUM
     Indication: DYSPEPSIA
     Route: 048
     Dates: start: 201512
  2. PRILOSEC [Suspect]
     Active Substance: OMEPRAZOLE MAGNESIUM
     Indication: GASTROOESOPHAGEAL REFLUX DISEASE
     Route: 048
     Dates: start: 2000
  3. DIOVAN [Concomitant]
     Active Substance: VALSARTAN
     Indication: BLOOD PRESSURE ABNORMAL
     Route: 048
     Dates: start: 2011
  4. XANAX [Concomitant]
     Active Substance: ALPRAZOLAM
     Indication: AFFECTIVE DISORDER
     Dosage: 1.0MG AS REQUIRED
     Route: 048
     Dates: start: 2010
  5. NEXIUM [Suspect]
     Active Substance: ESOMEPRAZOLE MAGNESIUM
     Indication: GASTROOESOPHAGEAL REFLUX DISEASE
     Route: 048
  6. NITROGLYCERIN. [Concomitant]
     Active Substance: NITROGLYCERIN
     Indication: HYPERTENSION
     Dosage: 0.4MG AS REQUIRED
     Route: 060
     Dates: start: 2010
  7. NEXIUM [Suspect]
     Active Substance: ESOMEPRAZOLE MAGNESIUM
     Indication: GASTROOESOPHAGEAL REFLUX DISEASE
     Route: 048
  8. PRILOSEC [Suspect]
     Active Substance: OMEPRAZOLE MAGNESIUM
     Indication: GASTROOESOPHAGEAL REFLUX DISEASE
     Route: 048
     Dates: start: 2000
  9. INDERAL [Concomitant]
     Active Substance: PROPRANOLOL HYDROCHLORIDE
     Indication: HEART RATE DECREASED
     Route: 048
     Dates: start: 1995
  10. VITAMIN D [Concomitant]
     Active Substance: CHOLECALCIFEROL
     Indication: HYPOVITAMINOSIS
     Route: 048
     Dates: start: 2015
  11. REFRESH EYE DROPS [Concomitant]
     Indication: CATARACT
     Dosage: FOUR TIMES A DAY
     Route: 047
     Dates: start: 2011
  12. PRILOSEC OTC [Suspect]
     Active Substance: OMEPRAZOLE MAGNESIUM
     Indication: GASTROOESOPHAGEAL REFLUX DISEASE
     Route: 048
     Dates: start: 201512
  13. TUMS [Concomitant]
     Active Substance: CALCIUM CARBONATE
     Indication: ABDOMINAL DISCOMFORT
     Dosage: AS REQUIRED
     Route: 048
  14. TEMAZEPAM. [Concomitant]
     Active Substance: TEMAZEPAM
     Indication: SLEEP DISORDER
     Route: 048
     Dates: start: 2015
  15. IMODIUM [Concomitant]
     Active Substance: LOPERAMIDE HYDROCHLORIDE
     Indication: DIARRHOEA
     Dosage: AS REQUIRED
     Route: 048
  16. NEXIUM 24HR [Suspect]
     Active Substance: ESOMEPRAZOLE MAGNESIUM
     Indication: GASTROOESOPHAGEAL REFLUX DISEASE
     Route: 048
  17. PRILOSEC OTC [Suspect]
     Active Substance: OMEPRAZOLE MAGNESIUM
     Indication: GASTROOESOPHAGEAL REFLUX DISEASE
     Route: 048
     Dates: start: 201512
  18. NEXIUM 24HR [Suspect]
     Active Substance: ESOMEPRAZOLE MAGNESIUM
     Indication: GASTROOESOPHAGEAL REFLUX DISEASE
     Route: 048

REACTIONS (7)
  - Diarrhoea [Recovered/Resolved]
  - Blood pressure increased [Recovering/Resolving]
  - Drug ineffective [Unknown]
  - Pain in extremity [Unknown]
  - Abdominal discomfort [Unknown]
  - Oesophageal discomfort [Unknown]
  - Burning sensation [Unknown]
